FAERS Safety Report 17441906 (Version 19)
Quarter: 2022Q2

REPORT INFORMATION
  Report Type: Spontaneous
  Country: CA (occurrence: CA)
  Receive Date: 20200220
  Receipt Date: 20220503
  Transmission Date: 20220720
  Serious: Yes (Other)
  Sender: FDA-Public Use
  Company Number: CA-ALLERGAN-1761788US

PATIENT
  Sex: Male

DRUGS (161)
  1. MESALAMINE [Suspect]
     Active Substance: MESALAMINE
     Indication: Colitis ulcerative
     Dosage: UNK
     Dates: start: 202109, end: 202109
  2. MESALAMINE [Suspect]
     Active Substance: MESALAMINE
     Dosage: UNK
     Dates: start: 202109, end: 202109
  3. MESALAMINE [Suspect]
     Active Substance: MESALAMINE
     Dosage: UNK
     Dates: start: 2017
  4. MESALAMINE [Suspect]
     Active Substance: MESALAMINE
     Dosage: UNK
     Dates: start: 2017, end: 201709
  5. MESALAMINE [Suspect]
     Active Substance: MESALAMINE
     Dosage: 8DF Q 8 WEEKS
     Dates: start: 201707
  6. MESALAMINE [Suspect]
     Active Substance: MESALAMINE
     Dosage: 50 MG
     Dates: start: 20170901, end: 2019
  7. MESALAMINE [Suspect]
     Active Substance: MESALAMINE
     Dosage: 50 MG
     Route: 048
     Dates: start: 20170101, end: 201701
  8. MESALAMINE [Suspect]
     Active Substance: MESALAMINE
     Dosage: UNK
     Dates: start: 20170101, end: 201701
  9. MESALAMINE [Suspect]
     Active Substance: MESALAMINE
     Dosage: UNK
     Dates: start: 20170101, end: 20171001
  10. MESALAMINE [Suspect]
     Active Substance: MESALAMINE
     Dosage: UNK
     Dates: start: 20170101, end: 20171001
  11. MESALAMINE [Suspect]
     Active Substance: MESALAMINE
     Dosage: 4.8 MG, QD
     Dates: start: 20170101
  12. MESALAMINE [Suspect]
     Active Substance: MESALAMINE
     Dosage: 8 DF
     Route: 048
     Dates: start: 201706
  13. MESALAMINE [Suspect]
     Active Substance: MESALAMINE
     Dosage: UNK
     Dates: start: 2017, end: 201709
  14. MESALAMINE [Suspect]
     Active Substance: MESALAMINE
     Dosage: UNK
     Dates: start: 201709, end: 201709
  15. MESALAMINE [Suspect]
     Active Substance: MESALAMINE
     Dosage: 4.8 MG
     Dates: start: 20170101
  16. MESALAMINE [Suspect]
     Active Substance: MESALAMINE
     Dosage: 50 MG
     Dates: start: 20170101, end: 20170901
  17. MESALAMINE [Suspect]
     Active Substance: MESALAMINE
     Dosage: UNK
     Dates: start: 201709, end: 201709
  18. MESALAMINE [Suspect]
     Active Substance: MESALAMINE
     Dosage: 8 DF Q 8 WEEKS
     Dates: start: 201707
  19. MESALAMINE [Suspect]
     Active Substance: MESALAMINE
     Dosage: UNK
     Dates: start: 2017
  20. MESALAMINE [Suspect]
     Active Substance: MESALAMINE
     Dosage: UNK
     Dates: start: 20170101, end: 20170901
  21. MESALAMINE [Suspect]
     Active Substance: MESALAMINE
     Dosage: 50 MG
     Route: 048
     Dates: start: 20170101, end: 20170901
  22. MESALAMINE [Suspect]
     Active Substance: MESALAMINE
     Dosage: 4.8 MG, QD
     Dates: start: 20161001
  23. MESALAMINE [Suspect]
     Active Substance: MESALAMINE
     Dosage: UNK
     Route: 048
     Dates: start: 20160101, end: 20161001
  24. MESALAMINE [Suspect]
     Active Substance: MESALAMINE
     Dosage: 2.4 G, QD
     Dates: start: 20161001
  25. MESALAMINE [Suspect]
     Active Substance: MESALAMINE
     Dosage: 50 MG
     Route: 048
     Dates: start: 20160101, end: 20161001
  26. MESALAMINE [Suspect]
     Active Substance: MESALAMINE
     Dosage: UNK
     Route: 048
     Dates: start: 201601, end: 201610
  27. MESALAMINE [Suspect]
     Active Substance: MESALAMINE
     Dosage: 6 DF, QD
     Dates: start: 20161001
  28. MESALAMINE [Suspect]
     Active Substance: MESALAMINE
     Dosage: 6 DF, QD
     Route: 048
     Dates: start: 20161001
  29. MESALAMINE [Suspect]
     Active Substance: MESALAMINE
     Dosage: UNK
     Route: 048
     Dates: start: 20160101, end: 20161001
  30. MESALAMINE [Suspect]
     Active Substance: MESALAMINE
     Dosage: 2.4 G, QD
     Dates: start: 20161001
  31. MESALAMINE [Suspect]
     Active Substance: MESALAMINE
     Dosage: 3 DF, BID
     Dates: start: 201601
  32. MESALAMINE [Suspect]
     Active Substance: MESALAMINE
     Dosage: 4.8 G, QD
     Dates: start: 20161001
  33. MESALAMINE [Suspect]
     Active Substance: MESALAMINE
     Dosage: 3 DF, BID
     Dates: start: 2016
  34. MESALAMINE [Suspect]
     Active Substance: MESALAMINE
     Dosage: UNK
     Route: 048
     Dates: start: 201601, end: 201610
  35. MESALAMINE [Suspect]
     Active Substance: MESALAMINE
     Dosage: 3 G, QD
     Dates: start: 20160110
  36. MESALAMINE [Suspect]
     Active Substance: MESALAMINE
     Dosage: 6 DF, QD
     Dates: start: 20161001
  37. MESALAMINE [Suspect]
     Active Substance: MESALAMINE
     Dosage: 50 MG
     Route: 048
     Dates: start: 20160101, end: 20161001
  38. MESALAMINE [Suspect]
     Active Substance: MESALAMINE
     Dosage: 4.8 G, QD
     Dates: start: 20161001
  39. MESALAMINE [Suspect]
     Active Substance: MESALAMINE
     Dosage: 3 DF, BID
     Dates: start: 201610
  40. MESALAMINE [Suspect]
     Active Substance: MESALAMINE
     Dosage: 50 MG
     Dates: start: 2009
  41. MESALAMINE [Suspect]
     Active Substance: MESALAMINE
     Dosage: 3 DF, BID
  42. MESALAMINE [Suspect]
     Active Substance: MESALAMINE
     Dosage: UNK
  43. ASACOL [Suspect]
     Active Substance: MESALAMINE
     Indication: Colitis ulcerative
     Dosage: 1 DF
     Dates: start: 201707
  44. ASACOL [Suspect]
     Active Substance: MESALAMINE
     Dosage: 50 MG
     Route: 065
     Dates: start: 20170101, end: 20170901
  45. ASACOL [Suspect]
     Active Substance: MESALAMINE
     Dosage: 4.8 G, QD
     Dates: start: 20161001
  46. ASACOL [Suspect]
     Active Substance: MESALAMINE
     Dosage: 3 DF, Q12H
     Dates: start: 20161001
  47. ASACOL [Suspect]
     Active Substance: MESALAMINE
     Dosage: 3 G, QD
     Dates: start: 20161001
  48. ASACOL [Suspect]
     Active Substance: MESALAMINE
     Dosage: 3 DF, BID
     Dates: start: 20161001
  49. ASACOL [Suspect]
     Active Substance: MESALAMINE
     Dosage: 2.4 G, QD
     Dates: start: 20161001
  50. ASACOL [Suspect]
     Active Substance: MESALAMINE
     Dosage: 6 DF, QD
     Dates: start: 20161001
  51. ASACOL [Suspect]
     Active Substance: MESALAMINE
     Dosage: 3 DF, BID
     Dates: start: 201610
  52. ASACOL [Suspect]
     Active Substance: MESALAMINE
     Dosage: 4.8 G, QD
     Dates: start: 201610
  53. ASACOL [Suspect]
     Active Substance: MESALAMINE
     Dosage: 6 DF, BID
     Dates: start: 201610
  54. ASACOL [Suspect]
     Active Substance: MESALAMINE
     Dosage: 3 G
     Dates: start: 201610
  55. MESALAMINE [Suspect]
     Active Substance: MESALAMINE
     Indication: Product used for unknown indication
     Dosage: UNK
     Route: 048
     Dates: start: 2017
  56. HYDROCORTISONE ACETATE [Suspect]
     Active Substance: HYDROCORTISONE ACETATE
     Indication: Colitis ulcerative
     Dosage: 8 DF, QD
     Route: 048
     Dates: start: 201807
  57. HYDROCORTISONE ACETATE [Suspect]
     Active Substance: HYDROCORTISONE ACETATE
     Indication: Crohn^s disease
     Dosage: 8 DF, Q8WEEKS
     Route: 048
     Dates: start: 201707
  58. HYDROCORTISONE ACETATE [Suspect]
     Active Substance: HYDROCORTISONE ACETATE
     Dosage: 1 DF, QD
     Route: 048
     Dates: start: 201707
  59. HYDROCORTISONE ACETATE [Suspect]
     Active Substance: HYDROCORTISONE ACETATE
     Dosage: 8 DF, QD
     Route: 048
     Dates: start: 201707
  60. HYDROCORTISONE ACETATE [Suspect]
     Active Substance: HYDROCORTISONE ACETATE
     Dosage: UNK, Q 6WEEKS
  61. HYDROCORTISONE ACETATE [Suspect]
     Active Substance: HYDROCORTISONE ACETATE
     Dosage: UNK
     Route: 042
  62. HYDROCORTISONE ACETATE [Suspect]
     Active Substance: HYDROCORTISONE ACETATE
     Dosage: UNK
     Route: 065
     Dates: start: 201601, end: 201610
  63. HYDROCORTISONE ACETATE [Suspect]
     Active Substance: HYDROCORTISONE ACETATE
     Dosage: UNK, Q 8 WEEKS
     Route: 048
  64. BUDESONIDE [Suspect]
     Active Substance: BUDESONIDE
     Indication: Colitis ulcerative
     Dosage: 1 DF, QD
     Route: 048
     Dates: start: 20170701
  65. BUDESONIDE [Suspect]
     Active Substance: BUDESONIDE
     Dosage: UNK UNK, Q8WEEKS
     Route: 048
     Dates: start: 201707
  66. BUDESONIDE [Suspect]
     Active Substance: BUDESONIDE
     Dosage: 1 DF, QD
     Route: 048
     Dates: start: 201707
  67. BUDESONIDE [Suspect]
     Active Substance: BUDESONIDE
     Dosage: 8 DF
     Route: 048
     Dates: start: 201707
  68. BUDESONIDE [Suspect]
     Active Substance: BUDESONIDE
     Dosage: 8 DF, Q8WEEKS
     Route: 048
     Dates: start: 201707
  69. BUDESONIDE [Suspect]
     Active Substance: BUDESONIDE
     Dosage: UNK UNK, Q8WEEKS
     Route: 048
     Dates: start: 200707
  70. BUDESONIDE [Suspect]
     Active Substance: BUDESONIDE
     Dosage: UNK UNK, Q8WEEKS
     Route: 048
  71. BUDESONIDE [Suspect]
     Active Substance: BUDESONIDE
     Dosage: UNK
     Route: 048
  72. CORTIFOAM [Suspect]
     Active Substance: HYDROCORTISONE ACETATE
     Indication: Colitis ulcerative
     Dosage: 8 DF, Q8WEEKS
     Route: 048
     Dates: start: 201707
  73. CORTIFOAM [Suspect]
     Active Substance: HYDROCORTISONE ACETATE
     Dosage: 1 DF, QD
     Route: 048
     Dates: start: 201707
  74. CORTIFOAM [Suspect]
     Active Substance: HYDROCORTISONE ACETATE
     Dosage: 1 DF, QD
     Route: 048
     Dates: start: 201707
  75. CORTIFOAM [Suspect]
     Active Substance: HYDROCORTISONE ACETATE
     Dosage: UNK, Q8WEEKS
  76. CORTIFOAM [Suspect]
     Active Substance: HYDROCORTISONE ACETATE
     Dosage: UNK
  77. BUDESONIDE [Suspect]
     Active Substance: BUDESONIDE
     Indication: Colitis ulcerative
     Dosage: 1 DF, QD
     Route: 048
     Dates: start: 201707
  78. BUDESONIDE [Suspect]
     Active Substance: BUDESONIDE
     Dosage: 8 DF, QD
     Route: 048
     Dates: start: 201707
  79. BUDESONIDE [Suspect]
     Active Substance: BUDESONIDE
     Dosage: 8 DF,Q8WEEKS
     Route: 048
     Dates: start: 201707
  80. BUDESONIDE [Suspect]
     Active Substance: BUDESONIDE
     Dosage: 8 DF,Q8WEEKS
     Route: 048
     Dates: start: 200707
  81. BUDESONIDE [Suspect]
     Active Substance: BUDESONIDE
     Dosage: 1 DOSAGE FORM, Q8WEEKS
     Route: 048
  82. INFLIXIMAB [Suspect]
     Active Substance: INFLIXIMAB
     Indication: Colitis ulcerative
     Dosage: 5 MG/KG
     Route: 042
     Dates: start: 20170101, end: 20170901
  83. INFLIXIMAB [Suspect]
     Active Substance: INFLIXIMAB
     Indication: Crohn^s disease
     Dosage: UNK UNK, Q8WEEKS
     Route: 042
     Dates: start: 20170101, end: 20170901
  84. INFLIXIMAB [Suspect]
     Active Substance: INFLIXIMAB
     Dosage: UNK
     Route: 042
     Dates: start: 20170101, end: 20170901
  85. INFLIXIMAB [Suspect]
     Active Substance: INFLIXIMAB
     Dosage: 5 MG/KG, Q8WEEKS
     Route: 042
     Dates: start: 20171019
  86. INFLIXIMAB [Suspect]
     Active Substance: INFLIXIMAB
     Dosage: 7 MG/KG, Q8WEEKS
     Route: 042
     Dates: start: 20171019
  87. INFLIXIMAB [Suspect]
     Active Substance: INFLIXIMAB
     Dosage: UNK, Q2WEEKS
     Route: 042
     Dates: start: 20171019
  88. INFLIXIMAB [Suspect]
     Active Substance: INFLIXIMAB
     Dosage: UNK, Q6WEEKS
     Route: 042
     Dates: start: 20171019
  89. INFLIXIMAB [Suspect]
     Active Substance: INFLIXIMAB
     Dosage: UNK, Q8WEEKS
     Route: 042
     Dates: start: 20171019
  90. INFLIXIMAB [Suspect]
     Active Substance: INFLIXIMAB
     Dosage: UNK, Q6WEEKS
     Route: 042
     Dates: start: 201709
  91. INFLIXIMAB [Suspect]
     Active Substance: INFLIXIMAB
     Dosage: UNK
     Route: 042
     Dates: start: 201709
  92. PREDNISONE [Suspect]
     Active Substance: PREDNISONE
     Indication: Colitis ulcerative
     Dosage: UNK
     Dates: start: 2017, end: 2017
  93. PREDNISONE [Suspect]
     Active Substance: PREDNISONE
     Dosage: UNK
     Dates: start: 2017
  94. PREDNISONE [Suspect]
     Active Substance: PREDNISONE
     Dosage: 50 MG
     Dates: start: 2017
  95. PREDNISONE [Suspect]
     Active Substance: PREDNISONE
     Dosage: 50 MG
     Dates: start: 2009
  96. PREDNISONE [Suspect]
     Active Substance: PREDNISONE
     Dosage: UNK
     Dates: start: 2009, end: 2009
  97. PREDNISONE [Suspect]
     Active Substance: PREDNISONE
     Dosage: UNK
     Dates: start: 2009, end: 2016
  98. PREDNISONE [Suspect]
     Active Substance: PREDNISONE
     Dosage: 50 MG
  99. ENTYVIO [Suspect]
     Active Substance: VEDOLIZUMAB
     Indication: Colitis ulcerative
     Dosage: 1 DF, QD
     Route: 048
     Dates: start: 201807
  100. ENTYVIO [Suspect]
     Active Substance: VEDOLIZUMAB
     Dosage: UNK
     Route: 048
     Dates: start: 201707
  101. ENTYVIO [Suspect]
     Active Substance: VEDOLIZUMAB
     Dosage: UNK
     Route: 042
     Dates: start: 2017
  102. ENTYVIO [Suspect]
     Active Substance: VEDOLIZUMAB
     Dosage: UNK
     Route: 048
     Dates: start: 2017, end: 2017
  103. ENTYVIO [Suspect]
     Active Substance: VEDOLIZUMAB
     Dosage: UNK
     Route: 042
     Dates: start: 2017, end: 2017
  104. VEDOLIZUMAB [Suspect]
     Active Substance: VEDOLIZUMAB
     Indication: Colitis ulcerative
     Dosage: UNK
     Route: 042
     Dates: start: 2019, end: 2019
  105. VEDOLIZUMAB [Suspect]
     Active Substance: VEDOLIZUMAB
     Indication: Deep vein thrombosis
     Dosage: 1 DF, QD
     Route: 048
     Dates: start: 201807
  106. VEDOLIZUMAB [Suspect]
     Active Substance: VEDOLIZUMAB
     Dosage: UNK
     Dates: start: 2017
  107. VEDOLIZUMAB [Suspect]
     Active Substance: VEDOLIZUMAB
     Dosage: UNK
     Route: 048
     Dates: start: 2017, end: 2017
  108. VEDOLIZUMAB [Suspect]
     Active Substance: VEDOLIZUMAB
     Dosage: UNK
     Route: 042
     Dates: start: 2017
  109. VEDOLIZUMAB [Suspect]
     Active Substance: VEDOLIZUMAB
     Dosage: 1 DF, QD
     Route: 048
  110. VEDOLIZUMAB [Suspect]
     Active Substance: VEDOLIZUMAB
     Dosage: UNK
     Dates: start: 2009, end: 2019
  111. MESALAMINE [Suspect]
     Active Substance: MESALAMINE
     Indication: Colitis ulcerative
     Dosage: UNK
     Route: 065
     Dates: start: 202109, end: 202109
  112. MESALAMINE [Suspect]
     Active Substance: MESALAMINE
     Dosage: UNK
     Route: 065
     Dates: start: 20170101, end: 20170901
  113. MESALAMINE [Suspect]
     Active Substance: MESALAMINE
     Dosage: 4.8 G, QD
     Route: 065
     Dates: start: 20170101
  114. MESALAMINE [Suspect]
     Active Substance: MESALAMINE
     Dosage: UNK
     Route: 065
     Dates: start: 201709, end: 201709
  115. MESALAMINE [Suspect]
     Active Substance: MESALAMINE
     Dosage: UNK
     Dates: start: 2017, end: 201709
  116. MESALAMINE [Suspect]
     Active Substance: MESALAMINE
     Dosage: UNK, QD
     Dates: start: 2017, end: 201709
  117. MESALAMINE [Suspect]
     Active Substance: MESALAMINE
     Dosage: 50 MG
     Dates: start: 20170101, end: 20170901
  118. MESALAMINE [Suspect]
     Active Substance: MESALAMINE
     Dosage: 8DF Q 8 WEEKS
     Dates: start: 201707
  119. MESALAMINE [Suspect]
     Active Substance: MESALAMINE
     Dosage: 8 DF, Q 8WEEKS
     Route: 048
     Dates: start: 201706
  120. MESALAMINE [Suspect]
     Active Substance: MESALAMINE
     Dosage: UNK
     Route: 048
     Dates: start: 20160101, end: 201610
  121. MESALAMINE [Suspect]
     Active Substance: MESALAMINE
     Dosage: 2.4 G, QD
     Dates: start: 20161001
  122. MESALAMINE [Suspect]
     Active Substance: MESALAMINE
     Dosage: 50 MG
     Dates: start: 20160101, end: 20161001
  123. MESALAMINE [Suspect]
     Active Substance: MESALAMINE
     Dosage: 3 DF, BID
     Dates: start: 201610
  124. MESALAMINE [Suspect]
     Active Substance: MESALAMINE
     Dosage: UNK
     Route: 048
     Dates: start: 20160101, end: 20161001
  125. MESALAMINE [Suspect]
     Active Substance: MESALAMINE
     Dosage: UNK
     Dates: start: 20160101, end: 201610
  126. MESALAMINE [Suspect]
     Active Substance: MESALAMINE
     Dosage: 6 DF, QD
     Dates: start: 20161001
  127. MESALAMINE [Suspect]
     Active Substance: MESALAMINE
     Dosage: 4.8 G, QD
     Dates: start: 20161001
  128. MESALAMINE [Suspect]
     Active Substance: MESALAMINE
     Dosage: 50 MG
     Dates: start: 2009
  129. MESALAMINE [Suspect]
     Active Substance: MESALAMINE
     Dosage: 2.4 G, QD
     Dates: start: 201601, end: 201610
  130. WARFARIN [Suspect]
     Active Substance: WARFARIN
     Indication: Colitis ulcerative
     Dosage: UNK
     Route: 065
     Dates: start: 2019
  131. WARFARIN [Suspect]
     Active Substance: WARFARIN
     Indication: Deep vein thrombosis
     Dosage: 8 DF, Q8WEEKS
     Route: 048
     Dates: start: 201707
  132. WARFARIN [Suspect]
     Active Substance: WARFARIN
     Dosage: 1 DF, QD
     Route: 048
     Dates: start: 201707
  133. WARFARIN [Suspect]
     Active Substance: WARFARIN
     Dosage: UNK
     Route: 048
     Dates: start: 2009
  134. WARFARIN [Suspect]
     Active Substance: WARFARIN
     Dosage: UNK
     Route: 048
     Dates: start: 2009
  135. WARFARIN [Suspect]
     Active Substance: WARFARIN
     Dosage: UNK
  136. ADALIMUMAB [Suspect]
     Active Substance: ADALIMUMAB
     Indication: Crohn^s disease
     Dosage: 8 DF, UNKNOWN
     Route: 048
     Dates: start: 201707
  137. CORTISONE ACETATE [Suspect]
     Active Substance: CORTISONE ACETATE
     Indication: Product used for unknown indication
  138. SULFASALAZINE [Suspect]
     Active Substance: SULFASALAZINE
     Indication: Colitis ulcerative
     Dosage: UNK
     Route: 065
     Dates: start: 201709, end: 201709
  139. SULFASALAZINE [Suspect]
     Active Substance: SULFASALAZINE
     Dosage: UNK
     Dates: start: 20160101, end: 20160101
  140. SULFASALAZINE [Suspect]
     Active Substance: SULFASALAZINE
     Dosage: UNK
     Route: 065
     Dates: start: 2009, end: 2016
  141. SULFASALAZINE [Suspect]
     Active Substance: SULFASALAZINE
     Dosage: UNK
     Dates: start: 20091001, end: 20161001
  142. SULFASALAZINE [Suspect]
     Active Substance: SULFASALAZINE
     Dosage: UNK
     Dates: start: 20090101, end: 20160101
  143. SULFASALAZINE [Suspect]
     Active Substance: SULFASALAZINE
     Dosage: 3 MG, QD
     Route: 048
  144. SULFASALAZINE [Suspect]
     Active Substance: SULFASALAZINE
     Dosage: 5 MG, QD
     Route: 048
  145. INFLECTRA [Suspect]
     Active Substance: INFLIXIMAB-DYYB
     Indication: Colitis ulcerative
     Dosage: 5 MG/KG AT 0, 2, 6 WEEKS, THEN, EVERY 8 WEEKS
     Route: 042
     Dates: start: 20171019
  146. WARFARIN SODIUM [Suspect]
     Active Substance: WARFARIN SODIUM
     Indication: Product used for unknown indication
     Dosage: UNK
     Dates: start: 2019
  147. WARFARIN SODIUM [Suspect]
     Active Substance: WARFARIN SODIUM
     Dosage: 1 DF, QD
     Dates: start: 201707
  148. WARFARIN SODIUM [Suspect]
     Active Substance: WARFARIN SODIUM
     Dosage: UNK
     Dates: start: 201707
  149. WARFARIN SODIUM [Suspect]
     Active Substance: WARFARIN SODIUM
     Dosage: 8 DOSAGE FORM, Q8WEEKS
     Route: 048
     Dates: start: 201707
  150. HYDROCORTISONE [Suspect]
     Active Substance: HYDROCORTISONE
     Indication: Colitis ulcerative
     Dosage: 8 DF, QD
     Route: 048
     Dates: start: 201807
  151. HYDROCORTISONE [Suspect]
     Active Substance: HYDROCORTISONE
     Dosage: 8 DF, Q 8 WEEKS
     Route: 048
     Dates: start: 201807
  152. HYDROCORTISONE [Suspect]
     Active Substance: HYDROCORTISONE
     Dosage: 8 DF, QD
     Route: 048
     Dates: start: 201807
  153. HYDROCORTISONE [Suspect]
     Active Substance: HYDROCORTISONE
     Dosage: 1 DF, QD
     Route: 048
     Dates: start: 201807
  154. HYDROCORTISONE [Suspect]
     Active Substance: HYDROCORTISONE
     Dosage: 8 DF, Q 8 WEEKS
     Route: 048
     Dates: start: 201707
  155. HYDROCORTISONE [Suspect]
     Active Substance: HYDROCORTISONE
     Dosage: 1 DF, QD
     Route: 048
  156. HUMIRA [Suspect]
     Active Substance: ADALIMUMAB
     Indication: Crohn^s disease
     Dosage: 8 DF
     Route: 048
     Dates: start: 201707
  157. ALBENDAZOLE [Suspect]
     Active Substance: ALBENDAZOLE
     Indication: Deep vein thrombosis
     Dosage: UNK
     Route: 042
     Dates: start: 2017, end: 2017
  158. METHOTREXATE [Concomitant]
     Active Substance: METHOTREXATE
     Indication: Colitis ulcerative
     Dosage: UNK
     Route: 065
     Dates: start: 201709, end: 201709
  159. METHOTREXATE [Concomitant]
     Active Substance: METHOTREXATE
     Dosage: UNK
     Route: 065
     Dates: start: 20090101, end: 20160101
  160. XELJANZ [Concomitant]
     Active Substance: TOFACITINIB CITRATE
     Indication: Colitis ulcerative
     Dosage: 5 MG, BID
     Route: 048
  161. TOFACITINIB CITRATE [Concomitant]
     Active Substance: TOFACITINIB CITRATE

REACTIONS (19)
  - Bronchiectasis [Unknown]
  - Colitis ulcerative [Unknown]
  - Condition aggravated [Unknown]
  - Deep vein thrombosis [Unknown]
  - Weight decreased [Unknown]
  - Loss of personal independence in daily activities [Unknown]
  - Impaired quality of life [Unknown]
  - Haematochezia [Unknown]
  - Frequent bowel movements [Unknown]
  - Stress [Not Recovered/Not Resolved]
  - Steroid dependence [Unknown]
  - Rectal haemorrhage [Unknown]
  - Impaired work ability [Unknown]
  - Medication error [Unknown]
  - Intentional product use issue [Unknown]
  - Product use in unapproved indication [Unknown]
  - Off label use [Unknown]
  - Inappropriate schedule of product administration [Unknown]
  - Drug ineffective [Unknown]

NARRATIVE: CASE EVENT DATE: 20080101
